FAERS Safety Report 20907168 (Version 2)
Quarter: 2022Q3

REPORT INFORMATION
  Report Type: Spontaneous
  Country: JP (occurrence: JP)
  Receive Date: 20220602
  Receipt Date: 20220707
  Transmission Date: 20221027
  Serious: Yes (Other)
  Sender: FDA-Public Use
  Company Number: JP-BAXTER-2022BAX010912

PATIENT

DRUGS (2)
  1. CYCLOPHOSPHAMIDE [Suspect]
     Active Substance: CYCLOPHOSPHAMIDE
     Indication: Prophylaxis against graft versus host disease
     Dosage: 50 MG/KG
     Route: 042
  2. TACROLIMUS [Concomitant]
     Active Substance: TACROLIMUS
     Indication: Prophylaxis against graft versus host disease
     Dosage: 0.003 MG/KG, QD
     Route: 042

REACTIONS (5)
  - Cardio-respiratory arrest [Recovering/Resolving]
  - Idiopathic pneumonia syndrome [Unknown]
  - Engraftment syndrome [Unknown]
  - Pleural effusion [Unknown]
  - Supraventricular tachycardia [Unknown]
